FAERS Safety Report 9930742 (Version 1)
Quarter: 2014Q1

REPORT INFORMATION
  Report Type: Spontaneous
  Country: US (occurrence: US)
  Receive Date: 20140227
  Receipt Date: 20140227
  Transmission Date: 20141002
  Serious: No
  Sender: FDA-Public Use
  Company Number: US-AMGEN-USASP2014001228

PATIENT
  Age: 38 Year
  Sex: Female

DRUGS (1)
  1. ENBREL [Suspect]
     Indication: SJOGREN^S SYNDROME
     Dosage: 50 MG, QWK
     Route: 058
     Dates: start: 20131105

REACTIONS (1)
  - Urinary tract infection [Unknown]
